FAERS Safety Report 12450507 (Version 1)
Quarter: 2016Q2

REPORT INFORMATION
  Report Type: Spontaneous
  Country: US (occurrence: None)
  Receive Date: 20160608
  Receipt Date: 20160608
  Transmission Date: 20160815
  Serious: Yes (Other)
  Sender: FDA-Public Use
  Company Number: None

PATIENT
  Age: 69 Year
  Sex: Male
  Weight: 80.2 kg

DRUGS (1)
  1. LISINOPRIL. [Suspect]
     Active Substance: LISINOPRIL
     Indication: HYPERTENSION
     Route: 048
     Dates: start: 20131127, end: 20160505

REACTIONS (4)
  - Acute kidney injury [None]
  - Condition aggravated [None]
  - Hyperkalaemia [None]
  - Chronic kidney disease [None]

NARRATIVE: CASE EVENT DATE: 20160505
